FAERS Safety Report 10607655 (Version 1)
Quarter: 2014Q4

REPORT INFORMATION
  Report Type: Spontaneous
  Country: GB (occurrence: GB)
  Receive Date: 20141125
  Receipt Date: 20141125
  Transmission Date: 20150529
  Serious: Yes (Disabling)
  Sender: FDA-Public Use
  Company Number: GB-WATSON-2014-25243

PATIENT
  Age: 43 Year
  Sex: Male

DRUGS (1)
  1. SIMVASTATIN (UNKNOWN) [Suspect]
     Active Substance: SIMVASTATIN
     Indication: BLOOD CHOLESTEROL INCREASED
     Dosage: UNK
     Route: 065

REACTIONS (12)
  - Activities of daily living impaired [Unknown]
  - Self esteem decreased [Unknown]
  - Disturbance in social behaviour [Unknown]
  - Social avoidant behaviour [Unknown]
  - Frustration [Unknown]
  - Impaired work ability [Unknown]
  - Asocial behaviour [Unknown]
  - Psychiatric symptom [Unknown]
  - Abdominal pain [Unknown]
  - Fatigue [Unknown]
  - Balance disorder [Unknown]
  - Quality of life decreased [Unknown]
